FAERS Safety Report 16573164 (Version 1)
Quarter: 2019Q3

REPORT INFORMATION
  Report Type: Spontaneous
  Country: DE (occurrence: DE)
  Receive Date: 20190715
  Receipt Date: 20190715
  Transmission Date: 20191004
  Serious: Yes (Hospitalization)
  Sender: FDA-Public Use
  Company Number: DE-TEVA-2019-DE-1077097

PATIENT
  Age: 83 Year
  Sex: Male

DRUGS (9)
  1. DABIGATRAN [Suspect]
     Active Substance: DABIGATRAN
     Dosage: 110 MG, 1-0-1-0
  2. OMEPRAZOL [Concomitant]
     Active Substance: OMEPRAZOLE
     Dosage: 20 MG, NEED
  3. METOPROLOL. [Concomitant]
     Active Substance: METOPROLOL
     Dosage: 95 MG, 1-0-1-0
  4. VALSARTAN. [Concomitant]
     Active Substance: VALSARTAN
     Dosage: 80 MG, 1-0-1-0; REQUIREMENT
  5. NAPROXEN. [Suspect]
     Active Substance: NAPROXEN
     Dosage: 500 MG, NEED
  6. PROSTAGUTT FORTE 160MG/120MG [Concomitant]
     Dosage: 160|120 MG, 1-0-1-0
  7. TORASEMID [Concomitant]
     Active Substance: TORSEMIDE
     Dosage: 10 MG, 1-0-0-0; REQUIREMENT
  8. SIMVASTATIN. [Concomitant]
     Active Substance: SIMVASTATIN
     Dosage: 20 MG, 0-0-1-0
  9. NAPROXEN. [Suspect]
     Active Substance: NAPROXEN
     Dosage: 500 MG, NK

REACTIONS (1)
  - Haematochezia [Unknown]

NARRATIVE: CASE EVENT DATE: 20171001
